FAERS Safety Report 17306314 (Version 1)
Quarter: 2020Q1

REPORT INFORMATION
  Report Type: Spontaneous
  Country: BR (occurrence: BR)
  Receive Date: 20200123
  Receipt Date: 20200123
  Transmission Date: 20200409
  Serious: Yes (Other)
  Sender: FDA-Public Use
  Company Number: BR-EMD SERONO-9141130

PATIENT
  Sex: Female

DRUGS (3)
  1. GLIFAGE [Suspect]
     Active Substance: METFORMIN HYDROCHLORIDE
     Dosage: ONE TABLET AFTER OR DURING LUNCH AND ONE AFTER OR DURING DINNER, NEW FORMAT
     Route: 048
     Dates: start: 201911
  2. NPH INSULIN [Concomitant]
     Active Substance: INSULIN BEEF
     Indication: TYPE 2 DIABETES MELLITUS
  3. GLIFAGE [Suspect]
     Active Substance: METFORMIN HYDROCHLORIDE
     Indication: TYPE 2 DIABETES MELLITUS
     Dosage: ONE TABLET AFTER OR DURING LUNCH AND ONE AFTER OR DURING DINNER, OLD FORMAT
     Route: 048

REACTIONS (5)
  - Tinnitus [Unknown]
  - Blood glucose fluctuation [Unknown]
  - Paraesthesia [Unknown]
  - Fatigue [Unknown]
  - Hyperhidrosis [Unknown]

NARRATIVE: CASE EVENT DATE: 201911
